FAERS Safety Report 8995233 (Version 1)
Quarter: 2012Q4

REPORT INFORMATION
  Report Type: Spontaneous
  Country: DE (occurrence: None)
  Receive Date: 20121221
  Receipt Date: 20121221
  Transmission Date: 20130627
  Serious: Yes (Other)
  Sender: FDA-Public Use
  Company Number: DSA_61245_2012

PATIENT
  Sex: Female

DRUGS (6)
  1. ELONTRIL [Suspect]
     Indication: SCHIZOAFFECTIVE DISORDER DEPRESSIVE TYPE
     Dosage: (DF Oral)
     Route: 048
  2. LEPONEX [Concomitant]
  3. QUILONUM /00033702/ [Concomitant]
  4. ABILIFY [Concomitant]
  5. LAMOTRIGINE [Concomitant]
  6. ELONTRIL [Concomitant]

REACTIONS (3)
  - Convulsion [None]
  - Encephalitis [None]
  - Meningitis [None]
